FAERS Safety Report 8900771 (Version 2)
Quarter: 2012Q4

REPORT INFORMATION
  Report Type: 
  Country: JP (occurrence: JP)
  Receive Date: 20121109
  Receipt Date: 20121121
  Transmission Date: 20130627
  Serious: Yes (Other)
  Sender: FDA-Public Use
  Company Number: JP-ASTELLAS-2012JP010473

PATIENT
  Age: 86 Year
  Sex: Male
  Weight: 65 kg

DRUGS (2)
  1. PROTOPIC [Suspect]
     Indication: STASIS DERMATITIS
     Dosage: 0.1 %, UNK
     Route: 061
     Dates: start: 20121025, end: 20121025
  2. PROTOPIC [Suspect]
     Indication: INFLAMMATION

REACTIONS (2)
  - Off label use [Unknown]
  - Hypotension [Recovering/Resolving]
